FAERS Safety Report 4898541-6 (Version None)
Quarter: 2006Q1

REPORT INFORMATION
  Report Type: 
  Country: None (occurrence: None)
  Receive Date: 20060130
  Receipt Date: 20060118
  Transmission Date: 20060701
  Serious: Yes (Other)
  Sender: FDA-Public Use
  Company Number: 2006010093

PATIENT
  Age: 91 Year
  Sex: Male
  Weight: 68.0396 kg

DRUGS (3)
  1. LIPITOR [Suspect]
     Indication: ILL-DEFINED DISORDER
     Dosage: 10 MG (10 MG, 1 IN 1D), ORAL
     Route: 048
     Dates: start: 19940801
  2. METOPROLOL (METOPROLOL) [Concomitant]
  3. ECOTRIN (ACETYLSALICYLIC ACID) [Concomitant]

REACTIONS (5)
  - CONSTIPATION [None]
  - CORONARY ARTERY OCCLUSION [None]
  - FLATULENCE [None]
  - IRRITABLE BOWEL SYNDROME [None]
  - TRIPLE VESSEL BYPASS GRAFT [None]
